FAERS Safety Report 9293548 (Version 3)
Quarter: 2013Q3

REPORT INFORMATION
  Report Type: Spontaneous
  Country: JP (occurrence: JP)
  Receive Date: 20130516
  Receipt Date: 20130731
  Transmission Date: 20140515
  Serious: Yes (Hospitalization)
  Sender: FDA-Public Use
  Company Number: JP-GLAXOSMITHKLINE-B0891199A

PATIENT
  Age: 29 Year
  Sex: Female

DRUGS (6)
  1. LAMICTAL [Suspect]
     Indication: BIPOLAR DISORDER
     Dosage: 25MG PER DAY
     Route: 048
     Dates: start: 20130503, end: 20130506
  2. SOLANAX [Concomitant]
     Indication: ANXIETY
     Dosage: .4MG TWICE PER DAY
     Route: 048
     Dates: start: 20130503
  3. LIMAS [Concomitant]
     Indication: BIPOLAR DISORDER
     Dosage: 200MG TWICE PER DAY
     Route: 048
     Dates: start: 20130503, end: 20130508
  4. FLUVOXAMINE MALEATE [Concomitant]
     Indication: DEPRESSED MOOD
     Dosage: 75MG TWICE PER DAY
     Route: 048
     Dates: start: 20130503, end: 20130508
  5. MYSLEE [Concomitant]
     Indication: INSOMNIA
     Dosage: 10MG PER DAY
     Route: 048
     Dates: start: 20130503
  6. AKINETON [Concomitant]
     Indication: PROPHYLAXIS
     Dosage: 1MG TWICE PER DAY
     Route: 048
     Dates: start: 20130503, end: 20130508

REACTIONS (3)
  - Drug eruption [Recovered/Resolved]
  - Pyrexia [Recovered/Resolved]
  - Rash [Unknown]
